FAERS Safety Report 23907282 (Version 2)
Quarter: 2024Q4

REPORT INFORMATION
  Report Type: Spontaneous
  Country: AT (occurrence: AT)
  Receive Date: 20240528
  Receipt Date: 20241127
  Transmission Date: 20250115
  Serious: Yes (Other)
  Sender: ASTELLAS
  Company Number: AT-ASTELLAS-2024US014752

PATIENT
  Age: 59 Year
  Sex: Male

DRUGS (8)
  1. ENFORTUMAB VEDOTIN [Suspect]
     Active Substance: ENFORTUMAB VEDOTIN
     Indication: Product used for unknown indication
     Dosage: CYCLIC (FULL DOSE)
     Route: 065
     Dates: start: 20230801
  2. ENFORTUMAB VEDOTIN [Suspect]
     Active Substance: ENFORTUMAB VEDOTIN
     Dosage: 2ND CYCLE DAY 8 RE START, 85% DOSE REDUCTION
     Route: 065
  3. ENFORTUMAB VEDOTIN [Suspect]
     Active Substance: ENFORTUMAB VEDOTIN
     Dosage: CYCLIC (3-5 CYCLE FULL DOSE)
     Route: 065
  4. ENFORTUMAB VEDOTIN [Suspect]
     Active Substance: ENFORTUMAB VEDOTIN
     Dosage: CYCLIC (6 CYCLE 85%)
     Route: 065
  5. ENFORTUMAB VEDOTIN [Suspect]
     Active Substance: ENFORTUMAB VEDOTIN
     Dosage: CYCLIC (LAST DOSE, 6 CYCLES)
     Route: 065
     Dates: start: 20231207, end: 20231207
  6. PEMBROLIZUMAB [Suspect]
     Active Substance: PEMBROLIZUMAB
     Indication: Product used for unknown indication
     Route: 065
     Dates: start: 20230801
  7. PEMBROLIZUMAB [Suspect]
     Active Substance: PEMBROLIZUMAB
     Dosage: 2ND CYCLE DAY 1, PEMBRO ONLY
     Route: 065
  8. EMPAGLIFLOZIN\METFORMIN HYDROCHLORIDE [Concomitant]
     Active Substance: EMPAGLIFLOZIN\METFORMIN HYDROCHLORIDE
     Indication: Product used for unknown indication
     Route: 065

REACTIONS (5)
  - Abdominal wall abscess [Unknown]
  - Polyneuropathy [Unknown]
  - Skin toxicity [Unknown]
  - Off label use [Unknown]
  - Product use issue [Unknown]

NARRATIVE: CASE EVENT DATE: 20230801
